FAERS Safety Report 20311147 (Version 1)
Quarter: 2022Q1

REPORT INFORMATION
  Report Type: Spontaneous
  Country: IN (occurrence: IN)
  Receive Date: 20220107
  Receipt Date: 20220107
  Transmission Date: 20220423
  Serious: Yes (Life-Threatening, Hospitalization, Other)
  Sender: FDA-Public Use
  Company Number: IN-LUPIN PHARMACEUTICALS INC.-2021-26524

PATIENT
  Age: 24 Year
  Sex: Female

DRUGS (1)
  1. MISOPROSTOL [Suspect]
     Active Substance: MISOPROSTOL
     Indication: Abortion
     Dosage: UNK
     Route: 067

REACTIONS (7)
  - Uterine rupture [Recovered/Resolved]
  - Cervix disorder [Recovered/Resolved]
  - Shock haemorrhagic [Recovered/Resolved]
  - Haemoperitoneum [Recovered/Resolved]
  - Intentional product misuse [Unknown]
  - Pelvic haematoma [Recovered/Resolved]
  - Exposure during pregnancy [Unknown]
